FAERS Safety Report 13934908 (Version 1)
Quarter: 2017Q3

REPORT INFORMATION
  Report Type: Spontaneous
  Country: US (occurrence: US)
  Receive Date: 20170905
  Receipt Date: 20170905
  Transmission Date: 20171127
  Serious: No
  Sender: FDA-Public Use
  Company Number: US-TEVA-802803ACC

PATIENT
  Sex: Female
  Weight: 75.82 kg

DRUGS (1)
  1. COPAXONE [Suspect]
     Active Substance: GLATIRAMER ACETATE
     Dosage: UNKNOWN FORM STRENGTH

REACTIONS (7)
  - Muscle spasms [Recovered/Resolved]
  - Mental fatigue [Unknown]
  - Thought blocking [Unknown]
  - Loss of personal independence in daily activities [Unknown]
  - Chills [Recovered/Resolved]
  - Fatigue [Unknown]
  - Injection site mass [Unknown]
